FAERS Safety Report 4540208-8 (Version None)
Quarter: 2004Q4

REPORT INFORMATION
  Report Type: 
  Country: None (occurrence: None)
  Receive Date: 20041222
  Receipt Date: 20041207
  Transmission Date: 20050328
  Serious: Yes (Life-Threatening)
  Sender: FDA-Public Use
  Company Number: US_0412108899

PATIENT
  Age: 76 Year
  Sex: Male

DRUGS (5)
  1. CEFACLOR [Suspect]
     Indication: UPPER RESPIRATORY TRACT INFLAMMATION
     Dosage: 750 MG
     Dates: start: 20041115, end: 20041119
  2. CEFCAPENE PIVOXIL HYDROCHLORIDE [Concomitant]
  3. LOXONIN (LOXOPROFEN SODIUM) [Concomitant]
  4. MEFENAMIC ACID [Concomitant]
  5. INDACIN (INDOMETACIN) [Concomitant]

REACTIONS (9)
  - ASPIRATION [None]
  - BLISTER [None]
  - DRUG INEFFECTIVE [None]
  - FALL [None]
  - HYPOXIA [None]
  - NEUROLEPTIC MALIGNANT SYNDROME [None]
  - PNEUMONIA [None]
  - RENAL FAILURE ACUTE [None]
  - RHABDOMYOLYSIS [None]
